FAERS Safety Report 7917370-X (Version None)
Quarter: 2011Q4

REPORT INFORMATION
  Report Type: 
  Country: None (occurrence: None)
  Receive Date: 20111114
  Receipt Date: 20111101
  Transmission Date: 20120403
  Serious: Yes (Other)
  Sender: FDA-Public Use
  Company Number: 1036462

PATIENT
  Age: 21 Year
  Sex: Female
  Weight: 52.8 kg

DRUGS (4)
  1. COSMOFER [Concomitant]
  2. METHOTREXATE [Suspect]
     Indication: CROHN'S DISEASE
     Dosage: 25 MG MILLIGRAM(S), INTRAMUSCULAR
     Route: 030
     Dates: start: 20101214, end: 20110819
  3. PENTASA [Concomitant]
  4. REMICADE [Suspect]
     Indication: CROHN'S DISEASE
     Dosage: 250 MG MILLIGRAM(S) INTRAVENOUS (NOT OTHERWISE SPECIFIED)
     Route: 042
     Dates: start: 20110111, end: 20110628

REACTIONS (17)
  - HYPERSENSITIVITY [None]
  - BLOOD TEST ABNORMAL [None]
  - BLOOD BICARBONATE DECREASED [None]
  - SERUM FERRITIN INCREASED [None]
  - GALLBLADDER DISORDER [None]
  - MEAN CELL VOLUME DECREASED [None]
  - BLOOD CREATININE DECREASED [None]
  - MEAN CELL HAEMOGLOBIN DECREASED [None]
  - BLOOD IMMUNOGLOBULIN M INCREASED [None]
  - HAEMATOCRIT DECREASED [None]
  - RED CELL DISTRIBUTION WIDTH INCREASED [None]
  - PROTEIN TOTAL INCREASED [None]
  - HAEMOGLOBIN DECREASED [None]
  - DRUG INTOLERANCE [None]
  - GAMMA-GLUTAMYLTRANSFERASE INCREASED [None]
  - ALANINE AMINOTRANSFERASE INCREASED [None]
  - ASPARTATE AMINOTRANSFERASE INCREASED [None]
